FAERS Safety Report 8155638 (Version 3)
Quarter: 2013Q2

REPORT INFORMATION
  Report Type: Report from Study
  Country: NO (occurrence: NO)
  Receive Date: 20110926
  Receipt Date: 20130520
  Transmission Date: 20140414
  Serious: Yes (Hospitalization)
  Sender: FDA-Public Use
  Company Number: PHHY2010NO36746

PATIENT
  Sex: Male
  Weight: 19 kg

DRUGS (7)
  1. ACZ885 [Suspect]
     Indication: CHRONIC INFANTILE NEUROLOGICAL CUTANEOUS AND ARTICULAR SYNDROME
     Dosage: 75 MG EVERY 8 WEEKS
     Route: 058
     Dates: start: 20100215
  2. ACZ885 [Suspect]
     Indication: CRYOPYRIN ASSOCIATED PERIODIC SYNDROME
  3. PNEUMOVAX [Suspect]
     Dosage: UNK
     Dates: start: 20100525
  4. PENICILLIN [Concomitant]
     Indication: SWELLING
     Dates: start: 20100527
  5. PENICILLIN [Concomitant]
     Indication: PYREXIA
  6. PENICILLIN [Concomitant]
     Indication: DEPENDENT RUBOR
  7. DICLOCIL [Concomitant]
     Indication: ERYSIPELAS
     Dates: start: 20100530

REACTIONS (7)
  - Erysipelas [Recovered/Resolved]
  - Pyrexia [Recovered/Resolved]
  - Injection site swelling [Recovered/Resolved]
  - Injection site erythema [Recovered/Resolved]
  - Pain in extremity [Recovered/Resolved]
  - Intracranial pressure increased [Unknown]
  - Papilloedema [Unknown]
